FAERS Safety Report 9355989 (Version 2)
Quarter: 2013Q3

REPORT INFORMATION
  Report Type: Spontaneous
  Country: PL (occurrence: PL)
  Receive Date: 20130619
  Receipt Date: 20130711
  Transmission Date: 20140515
  Serious: Yes (Other)
  Sender: FDA-Public Use
  Company Number: PL-ACTAVIS-2013-11245

PATIENT
  Age: 42 Year
  Sex: Male

DRUGS (2)
  1. FLUCONAZOLE (UNKNOWN) [Suspect]
     Indication: FUNGAL INFECTION
     Dosage: 100 MG, SINGLE
     Route: 048
  2. TRAZODONE HYDROCHLORIDE (WATSON LABORATORIES) [Interacting]
     Indication: DEPRESSION
     Dosage: 150 MG, DAILY, FROM SIX MONTHS
     Route: 065

REACTIONS (7)
  - Fatigue [Recovered/Resolved]
  - Disturbance in attention [Recovered/Resolved]
  - Somnolence [Recovered/Resolved]
  - Impaired driving ability [Recovered/Resolved]
  - Headache [Recovered/Resolved]
  - Chest discomfort [Recovered/Resolved]
  - Drug interaction [Recovered/Resolved]
